FAERS Safety Report 16934992 (Version 1)
Quarter: 2019Q4

REPORT INFORMATION
  Report Type: Spontaneous
  Country: US (occurrence: US)
  Receive Date: 20191018
  Receipt Date: 20191018
  Transmission Date: 20200122
  Serious: No
  Sender: FDA-Public Use
  Company Number: US-PFIZER INC-2019447209

PATIENT
  Sex: Female

DRUGS (9)
  1. PRADAXA [Concomitant]
     Active Substance: DABIGATRAN ETEXILATE MESYLATE
     Dosage: 150 MG, 2X/DAY
  2. XANAX [Interacting]
     Active Substance: ALPRAZOLAM
     Indication: ANXIETY
     Dosage: 0.25 MG AS NEEDED, (TAKE ONCE A DAY BUT MAY TAKE TWICE A DAY IF NEEDED)
  3. TIKOSYN [Suspect]
     Active Substance: DOFETILIDE
     Indication: CARDIAC DISORDER
     Dosage: 175 MG, UNK(TAKES 2 PILLS TO GET 175 MG, A 125 MG AND A 250 MG. )
  4. ATORVASTATIN CALCIUM. [Interacting]
     Active Substance: ATORVASTATIN CALCIUM
     Indication: BLOOD CHOLESTEROL
     Dosage: 20 MG, 1X/DAY (NIGHT)
  5. ZOLPIDEM TARTRATE. [Interacting]
     Active Substance: ZOLPIDEM TARTRATE
     Dosage: 2.5 MG, AS NEEDED(2.5 MG OR 5 MG IF NEEDED)
  6. ZOLPIDEM TARTRATE. [Interacting]
     Active Substance: ZOLPIDEM TARTRATE
     Dosage: 5 MG, AS NEEDED(2.5 MG OR 5 MG IF NEEDED)
  7. OMEPRAZOLE. [Concomitant]
     Active Substance: OMEPRAZOLE
     Dosage: 20 MG, 1X/DAY
  8. XANAX [Interacting]
     Active Substance: ALPRAZOLAM
     Indication: TENSION
  9. METOPROLOL SUCCINATE. [Interacting]
     Active Substance: METOPROLOL SUCCINATE
     Dosage: 0.25 MG, 1X/DAY

REACTIONS (3)
  - Drug interaction [Unknown]
  - Tension [Unknown]
  - Anxiety [Unknown]
